FAERS Safety Report 16196685 (Version 1)
Quarter: 2019Q2

REPORT INFORMATION
  Report Type: Spontaneous
  Country: US (occurrence: US)
  Receive Date: 20190412
  Receipt Date: 20190412
  Transmission Date: 20190711
  Serious: Yes (Other)
  Sender: FDA-Public Use
  Company Number: None

PATIENT
  Age: 61 Year
  Sex: Female
  Weight: 56.25 kg

DRUGS (7)
  1. CELEXA [Concomitant]
     Active Substance: CITALOPRAM HYDROBROMIDE
  2. MORPHINE [Concomitant]
     Active Substance: MORPHINE
  3. IBRANCE [Suspect]
     Active Substance: PALBOCICLIB
     Indication: BREAST CANCER
     Route: 048
     Dates: start: 20170124
  4. SEROQUEL [Concomitant]
     Active Substance: QUETIAPINE FUMARATE
  5. EXEMESTANE. [Concomitant]
     Active Substance: EXEMESTANE
  6. LORTAB [Concomitant]
     Active Substance: ACETAMINOPHEN\HYDROCODONE BITARTRATE
  7. COREG [Concomitant]
     Active Substance: CARVEDILOL

REACTIONS (1)
  - Disease progression [None]
